FAERS Safety Report 15316305 (Version 1)
Quarter: 2018Q3

REPORT INFORMATION
  Report Type: Spontaneous
  Country: US (occurrence: US)
  Receive Date: 20180816
  Receipt Date: 20180816
  Transmission Date: 20181010
  Serious: Yes (Hospitalization)
  Sender: FDA-Public Use
  Company Number: None

PATIENT
  Age: 69 Year
  Sex: Female

DRUGS (1)
  1. KRYSTEXXA [Suspect]
     Active Substance: PEGLOTICASE
     Dates: start: 20180621, end: 20180621

REACTIONS (5)
  - Fibrin D dimer increased [None]
  - Hypotension [None]
  - Pulmonary embolism [None]
  - Infusion related reaction [None]
  - Respiratory distress [None]

NARRATIVE: CASE EVENT DATE: 20180621
